FAERS Safety Report 11585133 (Version 1)
Quarter: 2015Q4

REPORT INFORMATION
  Report Type: Spontaneous
  Country: US (occurrence: US)
  Receive Date: 20151001
  Receipt Date: 20151001
  Transmission Date: 20160304
  Serious: No
  Sender: FDA-Public Use
  Company Number: US-GLAXOSMITHKLINE-US2015139183

PATIENT
  Age: 82 Year
  Sex: Male

DRUGS (1)
  1. LAMICTAL [Suspect]
     Active Substance: LAMOTRIGINE
     Indication: SEIZURE
     Dosage: 15 MG, 1D
     Route: 048
     Dates: start: 201201

REACTIONS (5)
  - Tooth extraction [Unknown]
  - Tooth repair [Unknown]
  - Stomatitis [Not Recovered/Not Resolved]
  - Dental prosthesis user [Unknown]
  - Tooth fracture [Not Recovered/Not Resolved]

NARRATIVE: CASE EVENT DATE: 201311
